FAERS Safety Report 5486105-5 (Version None)
Quarter: 2007Q4

REPORT INFORMATION
  Report Type: 
  Country: None (occurrence: None)
  Receive Date: 20071005
  Receipt Date: 20070802
  Transmission Date: 20080405
  Serious: No
  Sender: FDA-Public Use
  Company Number: PHEH2007US10820

PATIENT

DRUGS (3)
  1. TEKTURNA [Suspect]
     Indication: HYPERTENSION
     Dosage: 75 MG, QD, ORAL
     Route: 048
  2. VASOTEC [Suspect]
  3. COREG [Concomitant]

REACTIONS (1)
  - DIZZINESS [None]
